FAERS Safety Report 5930017-7 (Version None)
Quarter: 2008Q4

REPORT INFORMATION
  Report Type: 
  Country: None (occurrence: None)
  Receive Date: 20081024
  Receipt Date: 20081017
  Transmission Date: 20090506
  Serious: Yes (Other)
  Sender: FDA-Public Use
  Company Number: JP-ASTRAZENECA-2008AP08096

PATIENT
  Age: 60 Year
  Sex: Male

DRUGS (2)
  1. ARIMIDEX [Suspect]
     Indication: BREAST CANCER MALE
     Route: 048
     Dates: start: 20040101
  2. NOLVADEX [Suspect]
     Indication: BREAST CANCER MALE
     Dosage: DOSE UNKNOWN
     Route: 048
     Dates: start: 20020201, end: 20040101

REACTIONS (1)
  - LYMPHOMA [None]
